FAERS Safety Report 5670093-2 (Version None)
Quarter: 2008Q1

REPORT INFORMATION
  Report Type: 
  Country: None (occurrence: None)
  Receive Date: 20080312
  Receipt Date: 20080229
  Transmission Date: 20080703
  Serious: Yes (Hospitalization)
  Sender: FDA-Public Use
  Company Number: OMPQ-GE-0802S-0058

PATIENT
  Age: 58 Year
  Sex: Female

DRUGS (2)
  1. ACCUPAQUE (IOHEXOL) [Suspect]
     Indication: DRUG USE FOR UNKNOWN INDICATION
     Dosage: 80 ML, SINGLE DOSE, I.V.
     Route: 042
     Dates: start: 20080201, end: 20080201
  2. ACCUPAQUE (IOHEXOL) [Suspect]

REACTIONS (3)
  - COMPARTMENT SYNDROME [None]
  - IMPAIRED HEALING [None]
  - INJECTION SITE EXTRAVASATION [None]
